FAERS Safety Report 24417097 (Version 1)
Quarter: 2024Q4

REPORT INFORMATION
  Report Type: Spontaneous
  Country: US (occurrence: US)
  Receive Date: 20241009
  Receipt Date: 20241009
  Transmission Date: 20250115
  Serious: No
  Sender: CB FLEET
  Company Number: US-PRESTIGE-202407-US-002176

PATIENT
  Sex: Female

DRUGS (2)
  1. MONISTAT 7 [Suspect]
     Active Substance: MICONAZOLE NITRATE
     Indication: Fungal infection
     Dosage: 6TH DAY OF THE 7TH DAY FOR THE MEDICATION
     Route: 067
  2. MONISTAT 7 [Suspect]
     Active Substance: MICONAZOLE NITRATE
     Route: 067

REACTIONS (2)
  - Vaginal haemorrhage [Not Recovered/Not Resolved]
  - Vulvovaginal pain [Unknown]
